FAERS Safety Report 7902693-0 (Version None)
Quarter: 2011Q4

REPORT INFORMATION
  Report Type: 
  Country: None (occurrence: None)
  Receive Date: 20111108
  Receipt Date: 20111019
  Transmission Date: 20120403
  Serious: Yes (Congenital Anomaly)
  Sender: FDA-Public Use
  Company Number: AU-ASTRAZENECA-2011SE58612

PATIENT
  Age: 18 Month

DRUGS (1)
  1. ATACAND [Suspect]
     Route: 064

REACTIONS (3)
  - KIDNEY MALFORMATION [None]
  - ADVERSE EVENT [None]
  - RENAL FAILURE [None]
